FAERS Safety Report 17416039 (Version 1)
Quarter: 2020Q1

REPORT INFORMATION
  Report Type: Spontaneous
  Country: US (occurrence: US)
  Receive Date: 20200130
  Receipt Date: 20200130
  Transmission Date: 20200409
  Serious: No
  Sender: FDA-Public Use
  Company Number: None

PATIENT
  Sex: Male

DRUGS (1)
  1. AFINITOR [Suspect]
     Active Substance: EVEROLIMUS
     Indication: RENAL CANCER
     Route: 048
     Dates: start: 20190827

REACTIONS (5)
  - Blood alkaline phosphatase increased [None]
  - Decreased appetite [None]
  - Weight abnormal [None]
  - Vomiting [None]
  - Nausea [None]
